FAERS Safety Report 21365314 (Version 1)
Quarter: 2022Q3

REPORT INFORMATION
  Report Type: Spontaneous
  Country: US (occurrence: None)
  Receive Date: 20220922
  Receipt Date: 20220922
  Transmission Date: 20221027
  Serious: Yes (Hospitalization)
  Sender: FDA-Public Use
  Company Number: None

PATIENT
  Sex: Male
  Weight: 74 kg

DRUGS (4)
  1. CISPLATIN [Suspect]
     Active Substance: CISPLATIN
     Dates: end: 20220723
  2. IFOSFAMIDE [Suspect]
     Active Substance: IFOSFAMIDE
     Dates: end: 20220723
  3. TAXOL [Suspect]
     Active Substance: PACLITAXEL
     Dates: end: 20220719
  4. NEULASTA [Suspect]
     Active Substance: PEGFILGRASTIM
     Dates: end: 20220725

REACTIONS (9)
  - Febrile neutropenia [None]
  - Diarrhoea [None]
  - Vomiting [None]
  - Constipation [None]
  - C-reactive protein increased [None]
  - Procalcitonin increased [None]
  - Decreased appetite [None]
  - Weight decreased [None]
  - Fatigue [None]

NARRATIVE: CASE EVENT DATE: 20220728
